FAERS Safety Report 8765935 (Version 2)
Quarter: 2012Q4

REPORT INFORMATION
  Report Type: 
  Country: JP (occurrence: JP)
  Receive Date: 20120904
  Receipt Date: 20120904
  Transmission Date: 20130627
  Serious: Yes (Hospitalization)
  Sender: FDA-Public Use
  Company Number: JP-009507513-1206USA05397

PATIENT

DRUGS (16)
  1. GASTER [Suspect]
     Indication: NASOPHARYNGITIS
     Dosage: 20 mg, bid
     Route: 048
     Dates: start: 20120530, end: 20120604
  2. SALICYLAMIDE [Suspect]
     Indication: NASOPHARYNGITIS
     Dosage: 1 g, tid
     Route: 048
     Dates: start: 20120530, end: 20120604
  3. CHLOPHEDIANOL HYDROCHLORIDE [Suspect]
     Indication: HYPERTONIC BLADDER
     Dosage: 25 mg, qd
     Route: 048
     Dates: start: 20120523, end: 20120604
  4. AMITRIPTYLINE HYDROCHLORIDE [Suspect]
     Indication: HYPERTONIC BLADDER
     Dosage: 10 mg, qd
     Route: 048
     Dates: start: 20120523, end: 20120604
  5. GASMOTIN [Concomitant]
     Indication: NASOPHARYNGITIS
     Dosage: UNK
     Route: 048
     Dates: start: 20120530, end: 20120604
  6. REBAMIPIDE [Concomitant]
     Indication: NASOPHARYNGITIS
     Dosage: UNK
     Route: 048
     Dates: start: 20120530, end: 20120604
  7. FORSENID [Concomitant]
     Indication: NASOPHARYNGITIS
     Dosage: UNK
     Route: 048
     Dates: start: 20120530, end: 20120604
  8. URITOS [Concomitant]
     Indication: HYPERTONIC BLADDER
     Dosage: UNK
     Dates: start: 20120523, end: 20120604
  9. FLUCONAZOLE [Concomitant]
     Indication: LYMPHOMA
     Dosage: UNK
     Dates: start: 200606, end: 20120604
  10. ALFACALCIDOL [Concomitant]
     Indication: LYMPHOMA
     Dosage: UNK
     Dates: start: 200606, end: 20120604
  11. LASIX (FUROSEMIDE) [Concomitant]
     Indication: LYMPHOMA
     Dosage: UNK
     Dates: start: 200606, end: 20120604
  12. MAGNESIUM OXIDE [Concomitant]
     Indication: LYMPHOMA
     Dosage: UNK
     Route: 048
     Dates: start: 200606, end: 20120604
  13. DAIPHEN [Concomitant]
     Indication: LYMPHOMA
     Dosage: UNK
     Dates: start: 200606, end: 20120604
  14. BONALON [Concomitant]
     Indication: LYMPHOMA
     Dosage: UNK
     Route: 048
     Dates: start: 200606, end: 20120604
  15. MK-9350 [Concomitant]
     Indication: LYMPHOMA
     Dosage: UNK
     Route: 048
  16. MK-9350 [Concomitant]
     Indication: IDIOPATHIC THROMBOCYTOPENIC PURPURA

REACTIONS (1)
  - Stevens-Johnson syndrome [Recovering/Resolving]
